FAERS Safety Report 7480937-X (Version None)
Quarter: 2011Q2

REPORT INFORMATION
  Report Type: 
  Country: None (occurrence: None)
  Receive Date: 20110506
  Receipt Date: 20110427
  Transmission Date: 20111010
  Serious: Yes (Hospitalization)
  Sender: FDA-Public Use
  Company Number: 1000020592

PATIENT
  Age: 69 Year
  Sex: Male

DRUGS (12)
  1. INSULIN HUMAN (INSULIN HUMAN) [Concomitant]
  2. MELPERONE (MELPERONE) [Concomitant]
  3. TARGIN (NALOXONE) [Concomitant]
  4. NOVAMINSULFON (METAMIZOLE SODIUM) [Concomitant]
  5. MAGNESIUM VERLA (MAGNESIUM) [Concomitant]
  6. ATMADISC (FLUTICFASONE, SALMETEROL) (FLUTICASONE, SALMETEROL) [Concomitant]
  7. SPIRIVA [Concomitant]
  8. ALLOPURINOL [Concomitant]
  9. DICLOFENAC SODIUM [Concomitant]
  10. ROFLUMILAST (ROFLUMILAST) (500 MICROGRAM, TABLETS) [Suspect]
     Indication: CHRONIC OBSTRUCTIVE PULMONARY DISEASE
     Dosage: 500 MCG (500 MCG, 1 IN 1 D), ORAL
     Route: 048
     Dates: start: 20110207, end: 20110211
  11. DELMUNO (FELODIPINE, RAMIPRIL) (FELODIPINE, RAMIPRIL) [Concomitant]
  12. PANTOPRAZOLE [Concomitant]

REACTIONS (3)
  - JOINT DISLOCATION [None]
  - RESTLESSNESS [None]
  - CONFUSIONAL STATE [None]
